FAERS Safety Report 15985426 (Version 4)
Quarter: 2019Q3

REPORT INFORMATION
  Report Type: Spontaneous
  Country: US (occurrence: US)
  Receive Date: 20190220
  Receipt Date: 20190927
  Transmission Date: 20191004
  Serious: Yes (Death, Hospitalization, Other)
  Sender: FDA-Public Use
  Company Number: US-ASTRAZENECA-2018SF00432

PATIENT
  Sex: Female
  Weight: 104.3 kg

DRUGS (55)
  1. FENTANYL CITRATE. [Concomitant]
     Active Substance: FENTANYL CITRATE
  2. AMIODARONE [Concomitant]
     Active Substance: AMIODARONE
  3. ESCITALOPRAM [Concomitant]
     Active Substance: ESCITALOPRAM OXALATE
  4. LEVOTHYROXINE SODIUM. [Concomitant]
     Active Substance: LEVOTHYROXINE SODIUM
  5. ESTRACE [Concomitant]
     Active Substance: ESTRADIOL
  6. MELATONIN [Concomitant]
     Active Substance: MELATONIN
  7. SELENIUM [Concomitant]
     Active Substance: SELENIUM
  8. ZOFRAN [Concomitant]
     Active Substance: ONDANSETRON HYDROCHLORIDE
  9. HEPARIN [Concomitant]
     Active Substance: HEPARIN SODIUM
  10. AMBIEN [Concomitant]
     Active Substance: ZOLPIDEM TARTRATE
  11. ACETAMINOPHEN. [Concomitant]
     Active Substance: ACETAMINOPHEN
  12. NEXIUM [Suspect]
     Active Substance: ESOMEPRAZOLE MAGNESIUM
     Indication: GASTROOESOPHAGEAL REFLUX DISEASE
     Route: 048
     Dates: start: 20101101, end: 20170901
  13. DIPRIVAN [Concomitant]
     Active Substance: PROPOFOL
  14. PENTAZOCINE HYDROCHLORIDE [Concomitant]
     Active Substance: PENTAZOCINE HYDROCHLORIDE
  15. HYDROCODONE BITARTRATE AND ACETAMINOPHEN [Concomitant]
     Active Substance: ACETAMINOPHEN\HYDROCODONE BITARTRATE
  16. LEVOTHYROXINE. [Concomitant]
     Active Substance: LEVOTHYROXINE
  17. SUBLIMAZE [Concomitant]
     Active Substance: FENTANYL CITRATE
  18. XYLOCAINE [Concomitant]
     Active Substance: LIDOCAINE HYDROCHLORIDE
  19. PROTAMINE SULFATE. [Concomitant]
     Active Substance: PROTAMINE SULFATE
  20. CHOLECALCIFEROL [Concomitant]
     Active Substance: CHOLECALCIFEROL
  21. SODIUM CHLORIDE. [Concomitant]
     Active Substance: SODIUM CHLORIDE
  22. METFORMIN [Concomitant]
     Active Substance: METFORMIN HYDROCHLORIDE
  23. ZANTAC [Concomitant]
     Active Substance: RANITIDINE HYDROCHLORIDE
  24. HYDROCHLOROTHIAZIDE, TRIAMTERENE [Concomitant]
     Active Substance: HYDROCHLOROTHIAZIDE\TRIAMTERENE
  25. NEXIUM 24HR [Suspect]
     Active Substance: ESOMEPRAZOLE MAGNESIUM
     Indication: GASTROOESOPHAGEAL REFLUX DISEASE
     Route: 048
     Dates: start: 2014, end: 201709
  26. SUCCINYLCHOLINE CHLORIDE. [Concomitant]
     Active Substance: SUCCINYLCHOLINE CHLORIDE
  27. HEPARIN SODIUM. [Concomitant]
     Active Substance: HEPARIN SODIUM
  28. MIDAZOLAM [Concomitant]
     Active Substance: MIDAZOLAM HYDROCHLORIDE
  29. ZEMURON [Concomitant]
     Active Substance: ROCURONIUM BROMIDE
  30. SERTRALINE [Concomitant]
     Active Substance: SERTRALINE HYDROCHLORIDE
  31. FISH OIL [Concomitant]
     Active Substance: FISH OIL
  32. PREVPAC [Concomitant]
     Active Substance: AMOXICILLIN\CLARITHROMYCIN\LANSOPRAZOLE
  33. ASPIRIN. [Concomitant]
     Active Substance: ASPIRIN
  34. XARELTO [Concomitant]
     Active Substance: RIVAROXABAN
  35. CIPROFLOXACIN. [Concomitant]
     Active Substance: CIPROFLOXACIN
  36. CITALOPRAM [Concomitant]
     Active Substance: CITALOPRAM HYDROBROMIDE
  37. NEXIUM 24HR [Suspect]
     Active Substance: ESOMEPRAZOLE MAGNESIUM
     Indication: GASTROOESOPHAGEAL REFLUX DISEASE
     Route: 048
  38. HYDROCODONE BITARTRATE. [Concomitant]
     Active Substance: HYDROCODONE BITARTRATE
  39. POTASSIUM CHLORIDE. [Concomitant]
     Active Substance: POTASSIUM CHLORIDE
  40. HUMALOG [Concomitant]
     Active Substance: INSULIN LISPRO
  41. MECLIZINE [Concomitant]
     Active Substance: MECLIZINE HYDROCHLORIDE
  42. ZOLPIDEM [Concomitant]
     Active Substance: ZOLPIDEM TARTRATE
  43. FAMOTIDINE. [Concomitant]
     Active Substance: FAMOTIDINE
  44. POTASSIUM SULFATE [Concomitant]
     Active Substance: POTASSIUM SULFATE
  45. ONDANSETRON [Concomitant]
     Active Substance: ONDANSETRON
  46. METOPROLOL TARTRATE. [Concomitant]
     Active Substance: METOPROLOL TARTRATE
  47. XANAX [Concomitant]
     Active Substance: ALPRAZOLAM
  48. PREGABALIN. [Concomitant]
     Active Substance: PREGABALIN
  49. DIHYDROXYALUMINUM SODIUM CARBONATE [Concomitant]
     Active Substance: DIHYDROXYALUMINUM SODIUM CARBONATE
  50. VENLAFAXINE [Concomitant]
     Active Substance: VENLAFAXINE HYDROCHLORIDE
  51. BETAPACE [Concomitant]
     Active Substance: SOTALOL HYDROCHLORIDE
  52. NEXIUM [Suspect]
     Active Substance: ESOMEPRAZOLE MAGNESIUM
     Indication: GASTROOESOPHAGEAL REFLUX DISEASE
     Route: 048
     Dates: start: 20101101, end: 20170930
  53. LIDOCAINE. [Concomitant]
     Active Substance: LIDOCAINE
  54. PROGESTERONE. [Concomitant]
     Active Substance: PROGESTERONE
  55. WARFARIN [Concomitant]
     Active Substance: WARFARIN

REACTIONS (7)
  - Renal injury [Unknown]
  - Hypoxia [Fatal]
  - Acute kidney injury [Unknown]
  - Cardiac arrest [Fatal]
  - Pulmonary oedema [Fatal]
  - Renal failure [Fatal]
  - Chronic kidney disease [Unknown]
